FAERS Safety Report 5109371-4 (Version None)
Quarter: 2006Q3

REPORT INFORMATION
  Report Type: 
  Country: None (occurrence: None)
  Receive Date: 20060920
  Receipt Date: 20050427
  Transmission Date: 20061208
  Serious: Yes (Death, Hospitalization)
  Sender: FDA-Public Use
  Company Number: FR-BRISTOL-MYERS SQUIBB COMPANY-12951299

PATIENT
  Age: 77 Year
  Sex: Male

DRUGS (1)
  1. ELISOR TABS [Suspect]
     Indication: DYSLIPIDAEMIA
     Route: 048
     Dates: end: 20050327

REACTIONS (8)
  - ALDOLASE INCREASED [None]
  - ASPARTATE AMINOTRANSFERASE INCREASED [None]
  - BUNDLE BRANCH BLOCK [None]
  - CARDIAC DISORDER [None]
  - CHILLS [None]
  - HYPOTHYROIDISM [None]
  - MUSCULAR WEAKNESS [None]
  - RHABDOMYOLYSIS [None]
